FAERS Safety Report 25658050 (Version 5)
Quarter: 2025Q3

REPORT INFORMATION
  Report Type: Report from Study
  Country: EU (occurrence: EU)
  Receive Date: 20250808
  Receipt Date: 20250926
  Transmission Date: 20251020
  Serious: Yes (Death, Hospitalization, Other)
  Sender: ABBVIE
  Company Number: EU-ABBVIE-6405720

PATIENT
  Age: 77 Year
  Sex: Male

DRUGS (34)
  1. FOSCARBIDOPA\FOSLEVODOPA [Suspect]
     Active Substance: FOSCARBIDOPA\FOSLEVODOPA
     Indication: Parkinson^s disease
     Route: 058
     Dates: start: 20241216, end: 202507
  2. AMIKACIN [Concomitant]
     Active Substance: AMIKACIN
     Indication: Product used for unknown indication
  3. Nutramil [Concomitant]
     Indication: Product used for unknown indication
     Dates: start: 202506
  4. ENOXAPARIN SODIUM [Concomitant]
     Active Substance: ENOXAPARIN SODIUM
     Indication: Product used for unknown indication
  5. SODIUM CHLORIDE [Concomitant]
     Active Substance: SODIUM CHLORIDE
     Indication: Product used for unknown indication
  6. SODIUM CHLORIDE [Concomitant]
     Active Substance: SODIUM CHLORIDE
     Indication: Product used for unknown indication
  7. SODIUM CHLORIDE [Concomitant]
     Active Substance: SODIUM CHLORIDE
     Indication: Product used for unknown indication
  8. Corhydron [Concomitant]
     Indication: Product used for unknown indication
  9. PREGABALIN [Concomitant]
     Active Substance: PREGABALIN
     Indication: Product used for unknown indication
  10. FUROSEMIDE [Concomitant]
     Active Substance: FUROSEMIDE
     Indication: Product used for unknown indication
  11. Naproxen hasco [Concomitant]
     Indication: Product used for unknown indication
  12. SODIUM CHLORIDE [Concomitant]
     Active Substance: SODIUM CHLORIDE
     Indication: Product used for unknown indication
  13. Biotum [Concomitant]
     Indication: Product used for unknown indication
  14. FINASTERIDE [Concomitant]
     Active Substance: FINASTERIDE
     Indication: Product used for unknown indication
  15. PRIMACOR [Concomitant]
     Active Substance: MILRINONE LACTATE
     Indication: Product used for unknown indication
  16. ACETAMINOPHEN [Concomitant]
     Active Substance: ACETAMINOPHEN
     Indication: Product used for unknown indication
  17. Ketrel [Concomitant]
     Indication: Product used for unknown indication
  18. Natruim bicarbonicum [Concomitant]
     Indication: Product used for unknown indication
  19. PERINDOPRIL [Concomitant]
     Active Substance: PERINDOPRIL
     Indication: Product used for unknown indication
  20. Prokit [Concomitant]
     Indication: Product used for unknown indication
  21. Captopril jelfa [Concomitant]
     Indication: Product used for unknown indication
  22. Daryth [Concomitant]
     Indication: Product used for unknown indication
  23. Apo Tamis [Concomitant]
     Indication: Product used for unknown indication
  24. GLUCOSAMINE [Concomitant]
     Active Substance: GLUCOSAMINE
     Indication: Product used for unknown indication
  25. FLUCONAZOLE [Concomitant]
     Active Substance: FLUCONAZOLE
     Indication: Product used for unknown indication
  26. Kalium chloratum wzf [Concomitant]
     Indication: Product used for unknown indication
  27. LEVODOPA [Concomitant]
     Active Substance: LEVODOPA
     Indication: Product used for unknown indication
  28. CALCIUM CHLORIDE\MAGNESIUM CHLORIDE\POTASSIUM CHLORIDE\SODIUM ACETATE\ [Concomitant]
     Active Substance: CALCIUM CHLORIDE\MAGNESIUM CHLORIDE\POTASSIUM CHLORIDE\SODIUM ACETATE\SODIUM CHLORIDE\SODIUM CITRATE
     Indication: Product used for unknown indication
  29. CALCIUM CHLORIDE\MAGNESIUM CHLORIDE\POTASSIUM CHLORIDE\SODIUM ACETATE\ [Concomitant]
     Active Substance: CALCIUM CHLORIDE\MAGNESIUM CHLORIDE\POTASSIUM CHLORIDE\SODIUM ACETATE\SODIUM CHLORIDE\SODIUM CITRATE
     Indication: Product used for unknown indication
     Dates: start: 20250605
  30. Lactulose mip [Concomitant]
     Indication: Product used for unknown indication
  31. Levonor [Concomitant]
     Indication: Product used for unknown indication
  32. CEFTRIAXONE SODIUM [Concomitant]
     Active Substance: CEFTRIAXONE SODIUM
     Indication: Product used for unknown indication
  33. OMEPRAZOLE [Concomitant]
     Active Substance: OMEPRAZOLE
     Indication: Product used for unknown indication
  34. Telmix [Concomitant]
     Indication: Product used for unknown indication

REACTIONS (46)
  - Staphylococcal sepsis [Fatal]
  - Atelectasis [Unknown]
  - Pneumonia [Unknown]
  - Dysphagia [Unknown]
  - Lung opacity [Unknown]
  - Gastrointestinal hypomotility [Unknown]
  - Hypertensive heart disease [Unknown]
  - Blood creatinine increased [Recovered/Resolved]
  - Urinary tract infection [Unknown]
  - Blood urea increased [Unknown]
  - Dyspnoea at rest [Unknown]
  - Pleural effusion [Unknown]
  - N-terminal prohormone brain natriuretic peptide increased [Unknown]
  - Asthenia [Unknown]
  - Choking [Unknown]
  - Interleukin level increased [Unknown]
  - Urine ketone body present [Unknown]
  - Glucose urine [Unknown]
  - Haemoglobin decreased [Unknown]
  - Cyanosis [Unknown]
  - Blood sodium increased [Unknown]
  - Lymphocyte count decreased [Unknown]
  - Hepatic steatosis [Unknown]
  - Blood creatinine decreased [Unknown]
  - Alanine aminotransferase decreased [Unknown]
  - Glomerular filtration rate decreased [Recovered/Resolved]
  - C-reactive protein increased [Unknown]
  - Neutrophil count increased [Unknown]
  - Red blood cells urine positive [Unknown]
  - Prostatomegaly [Unknown]
  - Immature granulocyte count increased [Unknown]
  - Procalcitonin increased [Recovered/Resolved]
  - Dehydration [Unknown]
  - White blood cell count increased [Recovered/Resolved]
  - Renal disorder [Unknown]
  - Fibrin D dimer increased [Unknown]
  - White blood cells urine positive [Unknown]
  - Hypotension [Unknown]
  - Troponin I increased [Recovered/Resolved]
  - Blood glucose increased [Unknown]
  - Hypertension [Unknown]
  - Aspartate aminotransferase increased [Recovered/Resolved]
  - Liver injury [Unknown]
  - Oxygen saturation decreased [Recovered/Resolved]
  - Cognitive disorder [Unknown]
  - Red blood cell count decreased [Unknown]

NARRATIVE: CASE EVENT DATE: 20250401
